FAERS Safety Report 6132829-6 (Version None)
Quarter: 2009Q1

REPORT INFORMATION
  Report Type: 
  Country: None (occurrence: None)
  Receive Date: 20090324
  Receipt Date: 20090316
  Transmission Date: 20090719
  Serious: Yes (Death)
  Sender: FDA-Public Use
  Company Number: 1000005305

PATIENT
  Age: 68 Year
  Sex: Female

DRUGS (10)
  1. ESCITALOPRAM [Suspect]
  2. MIRTAZAPINE [Suspect]
  3. SERTRALINE HCL [Suspect]
  4. AMITRIPTYLINE HCL [Suspect]
  5. ZOLPIDEM [Suspect]
  6. LORAZEPAM [Suspect]
  7. TRAZODONE HCL [Suspect]
  8. PHENYTOIN [Concomitant]
  9. ACYCLOVIR [Suspect]
  10. ZYPREXA [Suspect]
     Dosage: 2.5 MG  (2.5 MG, 1 IN 1 D)

REACTIONS (1)
  - DRUG TOXICITY [None]
